FAERS Safety Report 5828040-6 (Version None)
Quarter: 2008Q3

REPORT INFORMATION
  Report Type: 
  Country: None (occurrence: None)
  Receive Date: 20080730
  Receipt Date: 20070917
  Transmission Date: 20090109
  Serious: No
  Sender: FDA-Public Use
  Company Number: A0682424A

PATIENT
  Age: 80 Year
  Sex: Female

DRUGS (7)
  1. ZANTAC [Suspect]
     Dosage: 300MG TWICE PER DAY
     Route: 048
     Dates: start: 20070910
  2. DILTIAZEM HCL [Concomitant]
  3. HYZAAR [Concomitant]
  4. ATENOLOL [Concomitant]
  5. DETROL LA [Concomitant]
  6. CRESTOR [Concomitant]
  7. TAMOXIFEN CITRATE [Concomitant]

REACTIONS (1)
  - HEADACHE [None]
